FAERS Safety Report 13422271 (Version 1)
Quarter: 2017Q2

REPORT INFORMATION
  Report Type: Spontaneous
  Country: DE (occurrence: DE)
  Receive Date: 20170410
  Receipt Date: 20170410
  Transmission Date: 20170830
  Serious: Yes (Other)
  Sender: FDA-Public Use
  Company Number: DE-HQ SPECIALTY-DE-2017INT000104

PATIENT
  Age: 68 Year
  Sex: Male
  Weight: 107 kg

DRUGS (6)
  1. DEXMEDETOMIDINE HYDROCHLORIDE. [Suspect]
     Active Substance: DEXMEDETOMIDINE HYDROCHLORIDE
     Indication: SURGERY
     Dosage: STARTING DOSE 175 ?L/KGIBW/ABW/HR, UNTIL START OF SAE 114 ML WAS ADMINISTERED
     Route: 042
     Dates: start: 20151204, end: 20151204
  2. DEXMEDETOMIDINE HYDROCHLORIDE. [Suspect]
     Active Substance: DEXMEDETOMIDINE HYDROCHLORIDE
     Dosage: UNK
     Route: 042
     Dates: start: 20151204
  3. ESKETAMINE [Concomitant]
     Active Substance: ESKETAMINE
     Indication: PRODUCT USED FOR UNKNOWN INDICATION
     Dosage: 1.5 MG/KGKGH/H
     Route: 065
     Dates: start: 20151204, end: 20151204
  4. SEVOFLURANE. [Concomitant]
     Active Substance: SEVOFLURANE
     Indication: MAINTENANCE OF ANAESTHESIA
     Dosage: TITRATED WITH A MAC BETWEEN 0.8-1
     Route: 065
     Dates: start: 20151204
  5. PIRITRAMIDE [Concomitant]
     Active Substance: PIRITRAMIDE
     Indication: PRODUCT USED FOR UNKNOWN INDICATION
     Dosage: 11 MG, 1 D
     Route: 065
     Dates: start: 20151204
  6. FENTANYL. [Concomitant]
     Active Substance: FENTANYL
     Indication: PRODUCT USED FOR UNKNOWN INDICATION
     Dosage: 0.5 MG, INTRAOPERATIVELY
     Route: 065
     Dates: start: 20151204, end: 20151204

REACTIONS (1)
  - Delayed recovery from anaesthesia [Recovered/Resolved]

NARRATIVE: CASE EVENT DATE: 20151204
